FAERS Safety Report 13794920 (Version 1)
Quarter: 2017Q3

REPORT INFORMATION
  Report Type: Spontaneous
  Country: GB (occurrence: GB)
  Receive Date: 20170726
  Receipt Date: 20170726
  Transmission Date: 20171127
  Serious: Yes (Hospitalization)
  Sender: FDA-Public Use
  Company Number: GB-AUROBINDO-AUR-APL-2017-37391

PATIENT
  Sex: Female

DRUGS (1)
  1. PARACETAMOL [Suspect]
     Active Substance: ACETAMINOPHEN
     Indication: PRODUCT USED FOR UNKNOWN INDICATION
     Dosage: OVER DOSE
     Route: 065

REACTIONS (5)
  - Diarrhoea [Unknown]
  - Migraine [Unknown]
  - Abdominal pain upper [Unknown]
  - Petechiae [Unknown]
  - Overdose [Unknown]
